FAERS Safety Report 19843010 (Version 1)
Quarter: 2021Q3

REPORT INFORMATION
  Report Type: Spontaneous
  Country: US (occurrence: US)
  Receive Date: 20210917
  Receipt Date: 20210917
  Transmission Date: 20211014
  Serious: Yes (Death)
  Sender: FDA-Public Use
  Company Number: US-ROCHE-2912161

PATIENT
  Age: 74 Year
  Sex: Male

DRUGS (11)
  1. BRILINTA [Concomitant]
     Active Substance: TICAGRELOR
  2. GLIPIZIDE ER [Concomitant]
     Active Substance: GLIPIZIDE
  3. METFORMIN [Concomitant]
     Active Substance: METFORMIN HYDROCHLORIDE
     Dosage: ER
  4. VALIUM [Concomitant]
     Active Substance: DIAZEPAM
     Route: 065
  5. MINOCYCLINE [Concomitant]
     Active Substance: MINOCYCLINE HYDROCHLORIDE
     Dosage: ER
  6. ESBRIET [Suspect]
     Active Substance: PIRFENIDONE
     Indication: PRODUCT USED FOR UNKNOWN INDICATION
     Dosage: ON AN UNSPECIFIED DATE, SHE RECEIVED LAST DOSE OF PIRFENIDONE.
     Route: 048
     Dates: start: 20180601
  7. ROSUVASTATIN. [Concomitant]
     Active Substance: ROSUVASTATIN
  8. ISOSORB MONO [Concomitant]
     Active Substance: ISOSORBIDE MONONITRATE
     Dosage: ER
  9. RANEXA [Concomitant]
     Active Substance: RANOLAZINE
  10. ASPIRIN. [Concomitant]
     Active Substance: ASPIRIN
  11. DILTIAZEM ER [Concomitant]
     Active Substance: DILTIAZEM

REACTIONS (1)
  - Death [Fatal]

NARRATIVE: CASE EVENT DATE: 20210901
